FAERS Safety Report 14227821 (Version 2)
Quarter: 2017Q4

REPORT INFORMATION
  Report Type: Spontaneous
  Country: US (occurrence: US)
  Receive Date: 20171127
  Receipt Date: 20171227
  Transmission Date: 20180321
  Serious: Yes (Hospitalization, Other)
  Sender: FDA-Public Use
  Company Number: US-PFIZER INC-2017505460

PATIENT
  Age: 37 Year
  Sex: Female

DRUGS (38)
  1. METFORMIN [Concomitant]
     Active Substance: METFORMIN HYDROCHLORIDE
     Dosage: 500 MG, 2X/DAY
  2. FLUTICASONE. [Concomitant]
     Active Substance: FLUTICASONE
     Dosage: UNK, 2X/DAY (50 MCG NS/16 GM APPLY EACH NOSTRIL )
  3. SUCRALFATE. [Concomitant]
     Active Substance: SUCRALFATE
     Indication: NAUSEA
     Dosage: 1 G, 1-4 TIMES A DAY
  4. THEOPHYLLINE [Concomitant]
     Active Substance: THEOPHYLLINE ANHYDROUS
     Dosage: 300 MG, 1/2 TABLET TWICE A DAY
  5. AMIDRINE [Concomitant]
     Dosage: UNK
  6. SPIRIVA [Concomitant]
     Active Substance: TIOTROPIUM BROMIDE MONOHYDRATE
     Dosage: 18 MCG INHALER 1PUFF EVENING
  7. SYSTANE ULTRA [Concomitant]
     Active Substance: POLYETHYLENE GLYCOL 400\PROPYLENE GLYCOL
     Dosage: UNK
     Route: 047
  8. ASPIRIN. [Concomitant]
     Active Substance: ASPIRIN
     Dosage: 81 MG, 1X/DAY
  9. TRICOR [Concomitant]
     Active Substance: FENOFIBRATE
     Dosage: 145 MG, 1X/DAY
  10. PANTOPRAZOLE [Concomitant]
     Active Substance: PANTOPRAZOLE
     Dosage: 20 MG, 1X/DAY
  11. IPRATROPIUM BROMIDE. [Concomitant]
     Active Substance: IPRATROPIUM BROMIDE
     Dosage: 15 ML, 4X/DAY (AS NECESSARILY)
  12. NITROGLYCERIN. [Concomitant]
     Active Substance: NITROGLYCERIN
     Indication: CHEST PAIN
  13. XERESE [Concomitant]
     Active Substance: ACYCLOVIR\HYDROCORTISONE
     Dosage: UNK
  14. ZOVIRAX [Concomitant]
     Active Substance: ACYCLOVIR
     Dosage: 5 G, 5 TIMES A DAY WHEN ON ABOUT
  15. PULMICORT TURBUHALER [Concomitant]
     Active Substance: BUDESONIDE
     Dosage: 180 UG, 3X/DAY (120 METERED DOSE)
  16. PROAIR HFA [Concomitant]
     Active Substance: ALBUTEROL SULFATE
     Dosage: 90 UG, 4X/DAY
  17. RESTASIS [Concomitant]
     Active Substance: CYCLOSPORINE
     Dosage: 0.5 % 1/2 VIAL; MORNING/EVENING TWICE A DAY
  18. GLIMEPIRIDE. [Concomitant]
     Active Substance: GLIMEPIRIDE
     Dosage: 1/2 TABLET A DAY
  19. BETAMETHASONE VALERATE. [Concomitant]
     Active Substance: BETAMETHASONE VALERATE
     Dosage: 0.1
  20. NAPROXEN. [Concomitant]
     Active Substance: NAPROXEN
     Dosage: 220 MG, 2X/DAY
  21. HYDROCODONE/ACETAMINOPHEN [Concomitant]
     Active Substance: ACETAMINOPHEN\HYDROCODONE
     Indication: BACK PAIN
     Dosage: UNK, MONTHLY (HYDROCODONE 10/ACETAMINOPHEN 325)
  22. PAZEO [Concomitant]
     Active Substance: OLOPATADINE HYDROCHLORIDE
     Dosage: 2.5 INSTILL DROPS IN BOTH EYES MORNING
     Route: 047
  23. ALBUTEROL SULFATE. [Concomitant]
     Active Substance: ALBUTEROL SULFATE
     Dosage: 0083 MG/2.5/31 TWICE A DAY NECESSARILY
  24. AMLODIPINE [Concomitant]
     Active Substance: AMLODIPINE BESYLATE
     Dosage: 5 MG, 1X/DAY
  25. RANITIDINE. [Concomitant]
     Active Substance: RANITIDINE
     Dosage: 300 MG, 1X/DAY
  26. ZYRTEC [Concomitant]
     Active Substance: CETIRIZINE HYDROCHLORIDE
     Dosage: 10 MG, UNK
  27. NITROGLYCERIN. [Concomitant]
     Active Substance: NITROGLYCERIN
     Indication: ANGINA PECTORIS
     Dosage: 0.4 MG 1/150 GR 2SS AS NECESSARY
     Route: 060
  28. SKELAXIN [Suspect]
     Active Substance: METAXALONE
     Indication: MUSCLE SPASMS
     Dosage: UNK
  29. DULERA [Concomitant]
     Active Substance: FORMOTEROL FUMARATE DIHYDRATE\MOMETASONE FUROATE
     Dosage: 200 MG, UNK
  30. BUTALBITAL [Concomitant]
     Active Substance: BUTALBITAL
     Indication: MIGRAINE
     Dosage: 50-325-40, 1-2 CAPSULES EVERY 6 HOURS
  31. LOVASTATIN. [Concomitant]
     Active Substance: LOVASTATIN
     Dosage: 40 MG, 1X/DAY
  32. ISOSORBIDE. [Concomitant]
     Active Substance: ISOSORBIDE
     Dosage: 30 MG, 2X/DAY
  33. ZETIA [Concomitant]
     Active Substance: EZETIMIBE
     Dosage: 10 MG, 1X/DAY (1 TABLET MORNING)
  34. OLOPATADINE. [Concomitant]
     Active Substance: OLOPATADINE
     Dosage: 30.5 G, 2X/DAY (0.6% NS 30.5 GM TWICE A DAY MORNING/EVENING)
  35. CYCLOBENZAPRINE HCL [Concomitant]
     Active Substance: CYCLOBENZAPRINE HYDROCHLORIDE
     Indication: MUSCLE SPASMS
     Dosage: 10 MG, UNK
     Dates: start: 20171129
  36. METOCLOPRAMIDE. [Concomitant]
     Active Substance: METOCLOPRAMIDE
     Dosage: 5 MG LIQUID 1 TEA-SPOON , 3X/DAY
  37. VITAMIN D /00107901/ [Concomitant]
     Active Substance: ERGOCALCIFEROL
     Dosage: 50000 IU 1 WEEK
  38. AVAPRO [Concomitant]
     Active Substance: IRBESARTAN
     Dosage: 300 MG, 1X/DAY

REACTIONS (8)
  - Human papilloma virus test positive [Not Recovered/Not Resolved]
  - Bladder disorder [Not Recovered/Not Resolved]
  - Herpes simplex [Not Recovered/Not Resolved]
  - Sexually transmitted disease [Not Recovered/Not Resolved]
  - Renal disorder [Not Recovered/Not Resolved]
  - Pertussis [Recovered/Resolved]
  - Blood immunoglobulin E increased [Not Recovered/Not Resolved]
  - Dehydration [Not Recovered/Not Resolved]

NARRATIVE: CASE EVENT DATE: 20170921
